FAERS Safety Report 7042303-0 (Version None)
Quarter: 2010Q4

REPORT INFORMATION
  Report Type: 
  Country: None (occurrence: None)
  Receive Date: 20101013
  Receipt Date: 20100528
  Transmission Date: 20110411
  Serious: No
  Sender: FDA-Public Use
  Company Number: US-ASTRAZENECA-2010SE24860

PATIENT
  Sex: Female

DRUGS (4)
  1. SYMBICORT [Suspect]
     Indication: ASTHMA
     Dosage: TOTAL DAILY DOSE: 320 MCG
     Route: 055
     Dates: start: 20100511
  2. TYLENOL [Concomitant]
  3. PREVACID [Concomitant]
  4. VITAMINS [Concomitant]

REACTIONS (4)
  - DYSPHONIA [None]
  - INCREASED UPPER AIRWAY SECRETION [None]
  - LARYNGITIS [None]
  - OROPHARYNGEAL PAIN [None]
